FAERS Safety Report 23771375 (Version 2)
Quarter: 2024Q2

REPORT INFORMATION
  Report Type: Spontaneous
  Country: US (occurrence: None)
  Receive Date: 20240423
  Receipt Date: 20240528
  Transmission Date: 20240716
  Serious: No
  Sender: FDA-Public Use
  Company Number: 2024A086913

PATIENT
  Sex: Female

DRUGS (1)
  1. BREZTRI [Suspect]
     Active Substance: BUDESONIDE\FORMOTEROL\GLYCOPYRROLATE
     Route: 055

REACTIONS (7)
  - COVID-19 [Unknown]
  - Wrong technique in device usage process [Unknown]
  - Device use issue [Unknown]
  - Intentional product misuse [Unknown]
  - Product packaging quantity issue [Unknown]
  - Device leakage [Unknown]
  - Device delivery system issue [Unknown]
